FAERS Safety Report 20038429 (Version 1)
Quarter: 2021Q4

REPORT INFORMATION
  Report Type: Spontaneous
  Country: US (occurrence: US)
  Receive Date: 20211105
  Receipt Date: 20211105
  Transmission Date: 20220304
  Serious: No
  Sender: FDA-Public Use
  Company Number: US-BRISTOL-MYERS SQUIBB COMPANY-BMS-2021-114241

PATIENT
  Age: 72 Year
  Sex: Female
  Weight: 61.234 kg

DRUGS (4)
  1. ELIQUIS [Suspect]
     Active Substance: APIXABAN
     Indication: Cerebrovascular accident prophylaxis
     Dosage: 5 MILLIGRAM, BID
     Route: 048
     Dates: start: 20201215
  2. ELIQUIS [Suspect]
     Active Substance: APIXABAN
     Dosage: SPLIT HER 5MG TABLETS IN HALF AND TAKE HALF A TABLET TWICE A DAY TO GET A 2.5MG DOSE
     Route: 048
     Dates: start: 202108
  3. AMIODARONE [Suspect]
     Active Substance: AMIODARONE
     Indication: Product used for unknown indication
     Dosage: UNK
     Route: 065
     Dates: end: 202108
  4. ASPIRIN [Suspect]
     Active Substance: ASPIRIN
     Indication: Product used for unknown indication
     Dosage: UNK
     Route: 065

REACTIONS (3)
  - Weight increased [Unknown]
  - Memory impairment [Unknown]
  - Treatment noncompliance [Unknown]

NARRATIVE: CASE EVENT DATE: 20210801
